FAERS Safety Report 8179132-0 (Version None)
Quarter: 2012Q1

REPORT INFORMATION
  Report Type: 
  Country: None (occurrence: None)
  Receive Date: 20120302
  Receipt Date: 20120228
  Transmission Date: 20120608
  Serious: No
  Sender: FDA-Public Use
  Company Number: US-PFIZER INC-2012053292

PATIENT
  Sex: Female
  Weight: 72.56 kg

DRUGS (2)
  1. PROCARDIA XL [Suspect]
     Indication: HYPERTENSION
     Dosage: 30 MG, UNK
     Route: 048
  2. PROCARDIA [Suspect]
     Indication: HYPERTENSION
     Dosage: 10 MG, 3X/DAY
     Route: 048
     Dates: start: 20120201, end: 20120201

REACTIONS (1)
  - DIZZINESS [None]
